FAERS Safety Report 12518563 (Version 1)
Quarter: 2016Q2

REPORT INFORMATION
  Report Type: Spontaneous
  Country: IT (occurrence: IT)
  Receive Date: 20160630
  Receipt Date: 20160630
  Transmission Date: 20160815
  Serious: Yes (Hospitalization, Other)
  Sender: FDA-Public Use
  Company Number: IT-GILEAD-2016-0221252

PATIENT
  Age: 66 Year
  Sex: Male

DRUGS (7)
  1. RANEXA [Suspect]
     Active Substance: RANOLAZINE
     Indication: MYOCARDIAL ISCHAEMIA
     Dosage: UNK
     Route: 048
     Dates: start: 20160517
  2. LANSOX [Concomitant]
     Active Substance: LANSOPRAZOLE
  3. TORVAST [Concomitant]
     Active Substance: ATORVASTATIN
  4. BRILIQUE [Concomitant]
     Active Substance: TICAGRELOR
  5. NITROGLICERINA [Concomitant]
     Active Substance: NITROGLYCERIN
  6. CARDIOASPIRIN [Concomitant]
     Active Substance: ASPIRIN
  7. BISOPROLOL [Concomitant]
     Active Substance: BISOPROLOL

REACTIONS (3)
  - Abdominal pain upper [Unknown]
  - Off label use [Unknown]
  - Pancreatitis acute [Unknown]

NARRATIVE: CASE EVENT DATE: 20160517
